FAERS Safety Report 11766907 (Version 26)
Quarter: 2018Q2

REPORT INFORMATION
  Report Type: Report from Study
  Country: CA (occurrence: CA)
  Receive Date: 20151123
  Receipt Date: 20180628
  Transmission Date: 20180711
  Serious: Yes (Hospitalization, Other)
  Sender: FDA-Public Use
  Company Number: PHHY2015CA114503

PATIENT
  Age: 74 Year
  Sex: Female

DRUGS (2)
  1. HYDROMORPHONE [Concomitant]
     Active Substance: HYDROMORPHONE
     Indication: PRODUCT USED FOR UNKNOWN INDICATION
     Dosage: 1 MG, UNK
     Route: 065
  2. SANDOSTATIN LAR DEPOT [Suspect]
     Active Substance: OCTREOTIDE ACETATE
     Indication: GASTROINTESTINAL HAEMORRHAGE
     Dosage: 20 MG, QMO (EVERY 4 WEEKS)
     Route: 030
     Dates: start: 20140403

REACTIONS (25)
  - Blood pressure decreased [Unknown]
  - Haematochezia [Recovering/Resolving]
  - Spinal fracture [Not Recovered/Not Resolved]
  - Blood pressure systolic decreased [Unknown]
  - Gastric disorder [Recovering/Resolving]
  - Dehydration [Unknown]
  - Fatigue [Unknown]
  - Bronchitis [Unknown]
  - Hypotension [Unknown]
  - Body temperature decreased [Unknown]
  - Blood iron abnormal [Unknown]
  - Diarrhoea [Unknown]
  - Gastric ulcer [Unknown]
  - Mobility decreased [Unknown]
  - Blood pressure diastolic decreased [Unknown]
  - Dizziness [Unknown]
  - Product use in unapproved indication [Unknown]
  - Vomiting [Unknown]
  - Asthenia [Unknown]
  - Nausea [Unknown]
  - Gastric haemorrhage [Unknown]
  - Lumbar vertebral fracture [Unknown]
  - Malaise [Recovering/Resolving]
  - Anaemia [Not Recovered/Not Resolved]
  - Speech disorder [Unknown]

NARRATIVE: CASE EVENT DATE: 20140403
